FAERS Safety Report 21780255 (Version 2)
Quarter: 2023Q1

REPORT INFORMATION
  Report Type: Report from Study
  Country: US (occurrence: US)
  Receive Date: 20221227
  Receipt Date: 20230202
  Transmission Date: 20230417
  Serious: No
  Sender: FDA-Public Use
  Company Number: US-ACADIA PHARMACEUTICALS INC.-ACA-2022-PIM-004224

PATIENT
  Sex: Female

DRUGS (8)
  1. NUPLAZID [Suspect]
     Active Substance: PIMAVANSERIN TARTRATE
     Indication: Parkinson^s disease psychosis
     Dosage: 34 MILLIGRAM, QD
     Route: 065
  2. NUPLAZID [Suspect]
     Active Substance: PIMAVANSERIN TARTRATE
     Indication: Hallucination
     Dosage: 34 MILLIGRAM, QD
     Route: 048
  3. NUPLAZID [Suspect]
     Active Substance: PIMAVANSERIN TARTRATE
     Indication: Delusion
  4. BUSPIRONE HCL [Concomitant]
     Active Substance: BUSPIRONE HYDROCHLORIDE
     Dosage: 150 MILLIGRAM
  5. PEPTO-BISMOL [Concomitant]
     Active Substance: BISMUTH SUBSALICYLATE
     Dosage: 262 MG/15
  6. RYTARY [Concomitant]
     Active Substance: CARBIDOPA\LEVODOPA
     Dosage: 48.75-19 MG
  7. RASAGILINE MESYLATE [Concomitant]
     Active Substance: RASAGILINE MESYLATE
     Dosage: 1 MILLIGRAM
  8. ZOLPIDEM TARTRATE [Concomitant]
     Active Substance: ZOLPIDEM TARTRATE
     Dosage: 5 MILLIGRAM

REACTIONS (11)
  - Ill-defined disorder [Not Recovered/Not Resolved]
  - Asthenia [Not Recovered/Not Resolved]
  - Hypotonia [Not Recovered/Not Resolved]
  - Gait inability [Not Recovered/Not Resolved]
  - Dysstasia [Not Recovered/Not Resolved]
  - Product dose omission issue [Recovered/Resolved]
  - Impaired self-care [Not Recovered/Not Resolved]
  - Constipation [Not Recovered/Not Resolved]
  - Nausea [Not Recovered/Not Resolved]
  - Fall [Not Recovered/Not Resolved]
  - Drug ineffective [Unknown]
